FAERS Safety Report 15237475 (Version 2)
Quarter: 2018Q3

REPORT INFORMATION
  Report Type: Spontaneous
  Country: PL (occurrence: PL)
  Receive Date: 20180803
  Receipt Date: 20180808
  Transmission Date: 20181010
  Serious: Yes (Life-Threatening, Hospitalization)
  Sender: FDA-Public Use
  Company Number: PHHY2018PL061920

PATIENT
  Age: 8 Year
  Sex: Female

DRUGS (1)
  1. CARBAMAZEPINE. [Suspect]
     Active Substance: CARBAMAZEPINE
     Indication: EPILEPSY
     Route: 065

REACTIONS (10)
  - Toxic epidermal necrolysis [Recovering/Resolving]
  - Corneal abrasion [Not Recovered/Not Resolved]
  - Muscle atrophy [Not Recovered/Not Resolved]
  - Anxiety disorder [Not Recovered/Not Resolved]
  - Mobility decreased [Not Recovered/Not Resolved]
  - Respiratory failure [Recovering/Resolving]
  - Depression [Not Recovered/Not Resolved]
  - Cardiovascular insufficiency [Recovering/Resolving]
  - Malnutrition [Not Recovered/Not Resolved]
  - Muscle disorder [Not Recovered/Not Resolved]
